FAERS Safety Report 7362465-5 (Version None)
Quarter: 2011Q1

REPORT INFORMATION
  Report Type: 
  Country: None (occurrence: None)
  Receive Date: 20110318
  Receipt Date: 20110315
  Transmission Date: 20110831
  Serious: Yes (Other)
  Sender: FDA-Public Use
  Company Number: US-AMGEN-USASP2011007854

PATIENT
  Age: 75 Year
  Sex: Male
  Weight: 90.2 kg

DRUGS (10)
  1. CARDURA [Concomitant]
     Dosage: 2 MG, QD
  2. MIACALCIN [Concomitant]
     Dosage: UNK UNK, QD
     Route: 045
  3. RANITIDINE [Concomitant]
     Dosage: 150 UNK, Q12H
  4. LANTUS [Concomitant]
     Dosage: 20 IU, QD
     Route: 058
  5. HUMALOG [Concomitant]
     Dosage: 2 MG, QD
  6. PRAVACHOL [Concomitant]
     Dosage: 20 MG, QD
  7. FINASTERIDE [Concomitant]
     Dosage: 5 MG, QD
  8. ASPIRIN [Concomitant]
     Dosage: 81 UNK, QD
  9. XGEVA [Suspect]
     Indication: HYPERCALCAEMIA
     Dosage: 120 MG, QMO
     Route: 058
     Dates: start: 20110204, end: 20110204
  10. ALLOPURINOL [Concomitant]
     Dosage: 300 UNK, QD

REACTIONS (5)
  - PALPITATIONS [None]
  - SINUS ARRHYTHMIA [None]
  - PRURITUS [None]
  - BLOOD CREATININE INCREASED [None]
  - HYPERTENSION [None]
